FAERS Safety Report 8422627 (Version 8)
Quarter: 2013Q4

REPORT INFORMATION
  Report Type: Report from Study
  Country: BR (occurrence: BR)
  Receive Date: 20120223
  Receipt Date: 20131216
  Transmission Date: 20140711
  Serious: Yes (Hospitalization, Other)
  Sender: FDA-Public Use
  Company Number: BR-ROCHE-780181

PATIENT
  Sex: Female
  Weight: 67 kg

DRUGS (8)
  1. ACTEMRA [Suspect]
     Indication: RHEUMATOID ARTHRITIS
     Route: 042
     Dates: start: 20120214
  2. CORTISONE [Suspect]
     Indication: PRODUCT USED FOR UNKNOWN INDICATION
     Route: 065
  3. DEFLAZACORT [Concomitant]
     Route: 065
  4. ATACAND [Concomitant]
     Route: 065
  5. ATENOLOL [Concomitant]
     Route: 065
  6. ACTONEL [Concomitant]
     Route: 065
  7. METHOTREXATE [Concomitant]
     Route: 048
  8. METHOTREXATE [Concomitant]
     Route: 065

REACTIONS (14)
  - Femur fracture [Recovering/Resolving]
  - Femoral neck fracture [Recovered/Resolved]
  - Chondropathy [Recovered/Resolved]
  - Gait disturbance [Recovered/Resolved]
  - Arthropathy [Unknown]
  - Rheumatoid arthritis [Recovered/Resolved]
  - Dysstasia [Not Recovered/Not Resolved]
  - Gait disturbance [Not Recovered/Not Resolved]
  - Arthralgia [Recovering/Resolving]
  - Local swelling [Not Recovered/Not Resolved]
  - Pain [Unknown]
  - Wound [Recovered/Resolved]
  - Skin disorder [Unknown]
  - Arthralgia [Unknown]
